FAERS Safety Report 4382123-9 (Version None)
Quarter: 2004Q2

REPORT INFORMATION
  Report Type: 
  Country: None (occurrence: None)
  Receive Date: 20040603
  Receipt Date: 20040128
  Transmission Date: 20050107
  Serious: Yes (Other)
  Sender: FDA-Public Use
  Company Number: 200311157US

PATIENT
  Age: 90 Year
  Sex: Female
  Weight: 59.1 kg

DRUGS (1)
  1. LOVENOX [Suspect]
     Indication: PROPHYLAXIS
     Dosage: 30 MG BID
     Dates: end: 20030204

REACTIONS (3)
  - HEPARIN-INDUCED THROMBOCYTOPENIA [None]
  - OPERATIVE HAEMORRHAGE [None]
  - PLATELET COUNT DECREASED [None]
